FAERS Safety Report 6758410-3 (Version None)
Quarter: 2010Q2

REPORT INFORMATION
  Report Type: 
  Country: None (occurrence: None)
  Receive Date: 20100607
  Receipt Date: 20100525
  Transmission Date: 20101027
  Serious: Yes (Death, Other)
  Sender: FDA-Public Use
  Company Number: US-ROCHE-699521

PATIENT
  Age: 65 Year
  Sex: Female
  Weight: 67.6 kg

DRUGS (3)
  1. AVASTIN [Suspect]
     Dosage: DOSAGE NOT PROVIDED
     Route: 065
  2. TAXOL [Concomitant]
     Route: 042
  3. CARBOPLATIN [Concomitant]
     Route: 042

REACTIONS (2)
  - PULMONARY HAEMORRHAGE [None]
  - ROAD TRAFFIC ACCIDENT [None]
